FAERS Safety Report 4315020-5 (Version None)
Quarter: 2004Q1

REPORT INFORMATION
  Report Type: 
  Country: None (occurrence: None)
  Receive Date: 20040309
  Receipt Date: 20040225
  Transmission Date: 20041129
  Serious: Yes (Hospitalization)
  Sender: FDA-Public Use
  Company Number: UK067793

PATIENT
  Sex: Male

DRUGS (5)
  1. NEUPOGEN [Suspect]
     Indication: CHEMOTHERAPY
     Dosage: 480 MCG
     Dates: start: 20031201
  2. CYCLOPHOSPHAMIDE [Concomitant]
  3. DOXORUBICIN HCL [Concomitant]
  4. VINCRISTINE SULFATE [Concomitant]
  5. PREDNISONE [Concomitant]

REACTIONS (1)
  - ACUTE RESPIRATORY DISTRESS SYNDROME [None]
